FAERS Safety Report 7363589-9 (Version None)
Quarter: 2011Q1

REPORT INFORMATION
  Report Type: 
  Country: None (occurrence: None)
  Receive Date: 20110321
  Receipt Date: 20110316
  Transmission Date: 20110831
  Serious: Yes (Hospitalization)
  Sender: FDA-Public Use
  Company Number: GB-PFIZER INC-2011058563

PATIENT
  Age: 24 Year
  Sex: Female

DRUGS (3)
  1. TAZOCIN [Suspect]
     Indication: PYELONEPHRITIS
     Dosage: 4.5 G, UNK
     Route: 042
     Dates: start: 20110302, end: 20110303
  2. AMPICILLIN SODIUM/SULBACTAM SODIUM [Concomitant]
     Indication: PYELONEPHRITIS
     Dosage: 1 DF, 3X/DAY
     Route: 048
     Dates: start: 20110302, end: 20110302
  3. ACETAMINOPHEN AND CODEINE PHOSPHATE [Concomitant]
     Indication: PAIN
     Dosage: 2 DF, 4X/DAY
     Dates: start: 20110302

REACTIONS (1)
  - FACE OEDEMA [None]
